FAERS Safety Report 16406696 (Version 1)
Quarter: 2019Q2

REPORT INFORMATION
  Report Type: Spontaneous
  Country: US (occurrence: US)
  Receive Date: 20190607
  Receipt Date: 20190607
  Transmission Date: 20190711
  Serious: No
  Sender: FDA-Public Use
  Company Number: US-EAGLE PHARMACEUTICALS, INC.-US-2019EAG000010

PATIENT

DRUGS (1)
  1. BENDAMUSTINE HCL [Suspect]
     Active Substance: BENDAMUSTINE HYDROCHLORIDE
     Indication: PRODUCT USED FOR UNKNOWN INDICATION
     Dosage: 50 ML OVER 10MINUTES
     Route: 065

REACTIONS (2)
  - Product preparation error [Unknown]
  - Product administration error [Unknown]
